FAERS Safety Report 8486898-9 (Version None)
Quarter: 2012Q3

REPORT INFORMATION
  Report Type: 
  Country: None (occurrence: None)
  Receive Date: 20120704
  Receipt Date: 20120626
  Transmission Date: 20120928
  Serious: Yes (Other)
  Sender: FDA-Public Use
  Company Number: US-ELI_LILLY_AND_COMPANY-US201206009011

PATIENT
  Sex: Female

DRUGS (22)
  1. ADCIRCA [Suspect]
     Indication: PULMONARY HYPERTENSION
     Dosage: UNK UNK, UNKNOWN
     Route: 065
     Dates: start: 20120501, end: 20120617
  2. VYTORIN [Concomitant]
     Dosage: 10/40 MG
  3. VERAMYST [Concomitant]
     Dosage: UNK, QD
  4. BUSPAR [Concomitant]
     Dosage: 10 MG, TID
  5. CYMBALTA [Concomitant]
     Indication: DEPRESSION
     Dosage: 60 MG, UNK
     Dates: start: 20080101
  6. RESTORIL [Concomitant]
     Dosage: 30 MG, UNK
  7. ASTEPRO [Concomitant]
     Dosage: UNK, QD
     Route: 045
  8. POTASSIUM [Concomitant]
     Dosage: 190 MG, QD
  9. LORATADINE [Concomitant]
     Dosage: 10 MG, QD
  10. VITAMIN D [Concomitant]
     Dosage: 2000 IU, UNK
  11. CALCIUM [Concomitant]
     Dosage: 1200 MG, UNK
  12. AMLODIPINE [Concomitant]
     Dosage: 2.5 MG, QD
  13. LOSARTAN POTASSIUM AND HYDROCHLOROTHIAZIDE [Concomitant]
     Dosage: 100/25 MG DAILY
  14. PREMARIN [Concomitant]
     Dosage: 0.3 MG, UNK
  15. TUSSICAPS [Concomitant]
  16. SINGULAIR [Concomitant]
     Dosage: 10 MG, QD
  17. PREDNISONE [Concomitant]
     Dosage: UNK
  18. METFORMIN HCL [Concomitant]
     Dosage: 500 MG, BID
  19. LORCET-HD [Concomitant]
     Dosage: 7.5/650 MG PRN
  20. NEXIUM [Concomitant]
     Dosage: 40 MG, UNK
  21. TESSALON [Concomitant]
  22. LYRICA [Concomitant]
     Dosage: 50 MG, TID

REACTIONS (9)
  - VISUAL IMPAIRMENT [None]
  - HEADACHE [None]
  - CHEST PAIN [None]
  - BACK PAIN [None]
  - ARTHRALGIA [None]
  - PHOTOPSIA [None]
  - DYSPNOEA [None]
  - BLOOD PRESSURE INCREASED [None]
  - PAIN IN EXTREMITY [None]
